FAERS Safety Report 4670128-X (Version None)
Quarter: 2005Q2

REPORT INFORMATION
  Report Type: 
  Country: None (occurrence: None)
  Receive Date: 20050520
  Receipt Date: 20050510
  Transmission Date: 20051028
  Serious: Yes (Other)
  Sender: FDA-Public Use
  Company Number: 2005074294

PATIENT
  Sex: Female
  Weight: 54.4316 kg

DRUGS (4)
  1. NEURONTIN [Suspect]
     Indication: ILL-DEFINED DISORDER
     Dosage: 2400 MG (1 D), ORAL
     Route: 048
     Dates: end: 20050116
  2. XANAX [Suspect]
     Indication: ILL-DEFINED DISORDER
  3. REMERON [Concomitant]
  4. PERIACTIN [Concomitant]

REACTIONS (5)
  - APHASIA [None]
  - CONVULSION [None]
  - HYPERHIDROSIS [None]
  - PARALYSIS [None]
  - SKIN DISCOLOURATION [None]
